FAERS Safety Report 16289450 (Version 1)
Quarter: 2019Q2

REPORT INFORMATION
  Report Type: Spontaneous
  Country: US (occurrence: US)
  Receive Date: 20190403
  Receipt Date: 20190403
  Transmission Date: 20190711
  Serious: Yes (Death, Hospitalization)
  Sender: FDA-Public Use
  Company Number: None

PATIENT
  Age: 44 Year
  Sex: Female

DRUGS (16)
  1. OLANZAPINE. [Concomitant]
     Active Substance: OLANZAPINE
  2. ESCITOLOPRAM [Concomitant]
  3. RANITIDINE. [Concomitant]
     Active Substance: RANITIDINE
  4. MIDODRINA [Concomitant]
  5. APIRONOLACTONE [Concomitant]
  6. SILDENAFIL. [Concomitant]
     Active Substance: SILDENAFIL
  7. OXYCODONE [Concomitant]
     Active Substance: OXYCODONE
  8. IBUPROFEN. [Concomitant]
     Active Substance: IBUPROFEN
  9. BUPROPION. [Concomitant]
     Active Substance: BUPROPION
  10. TRAZODONE [Concomitant]
     Active Substance: TRAZODONE HYDROCHLORIDE
  11. TYLENOL [Concomitant]
     Active Substance: ACETAMINOPHEN
  12. OXYBUTYMIN [Concomitant]
  13. OPSUMIT [Suspect]
     Active Substance: MACITENTAN
     Indication: PULMONARY HYPERTENSION
     Route: 048
     Dates: start: 201512, end: 201903
  14. LIDOCAINE TOP CREAM [Concomitant]
  15. SELEXIPAG [Concomitant]
     Active Substance: SELEXIPAG
  16. TOPIRAMATE. [Concomitant]
     Active Substance: TOPIRAMATE

REACTIONS (10)
  - Fall [None]
  - Face injury [None]
  - Post concussion syndrome [None]
  - Generalised tonic-clonic seizure [None]
  - Haematoma [None]
  - Pulseless electrical activity [None]
  - Loss of consciousness [None]
  - Encephalomalacia [None]
  - Syncope [None]
  - Amnesia [None]

NARRATIVE: CASE EVENT DATE: 20190315
